FAERS Safety Report 11123357 (Version 1)
Quarter: 2015Q2

REPORT INFORMATION
  Report Type: Spontaneous
  Country: US (occurrence: US)
  Receive Date: 20150519
  Receipt Date: 20150519
  Transmission Date: 20150821
  Serious: No
  Sender: FDA-Public Use
  Company Number: US-AUXILIUM PHARMACEUTICALS INC.-201502087

PATIENT
  Sex: Male
  Weight: 95.34 kg

DRUGS (8)
  1. COREG [Concomitant]
     Active Substance: CARVEDILOL
  2. LIPITOR [Concomitant]
     Active Substance: ATORVASTATIN CALCIUM
  3. SIMVASTATIN. [Concomitant]
     Active Substance: SIMVASTATIN
  4. LOVAZA [Concomitant]
     Active Substance: OMEGA-3-ACID ETHYL ESTERS
  5. LISINOPRIL. [Concomitant]
     Active Substance: LISINOPRIL
  6. XIAFLEX [Suspect]
     Active Substance: COLLAGENASE CLOSTRIDIUM HISTOLYTICUM
     Indication: PEYRONIE^S DISEASE
     Route: 026
  7. ULORIC [Concomitant]
     Active Substance: FEBUXOSTAT
  8. NIASPAN [Concomitant]
     Active Substance: NIACIN

REACTIONS (1)
  - Penile contusion [Unknown]
